FAERS Safety Report 21484916 (Version 1)
Quarter: 2022Q4

REPORT INFORMATION
  Report Type: Spontaneous
  Country: KR (occurrence: KR)
  Receive Date: 20221020
  Receipt Date: 20221020
  Transmission Date: 20230113
  Serious: Yes (Other)
  Sender: FDA-Public Use
  Company Number: KR-GILEAD-2022-0601454

PATIENT
  Age: 69 Year
  Sex: Female

DRUGS (1)
  1. VIREAD [Suspect]
     Active Substance: TENOFOVIR DISOPROXIL FUMARATE
     Indication: Hepatitis B
     Dosage: UNK
     Route: 065

REACTIONS (3)
  - Hepatic cancer [Unknown]
  - Glomerular filtration rate decreased [Unknown]
  - Cystitis [Unknown]
